FAERS Safety Report 18456446 (Version 3)
Quarter: 2021Q2

REPORT INFORMATION
  Report Type: Report from Study
  Country: IE (occurrence: IE)
  Receive Date: 20201103
  Receipt Date: 20210510
  Transmission Date: 20210717
  Serious: Yes (Hospitalization, Other)
  Sender: FDA-Public Use
  Company Number: IE-EMD SERONO-9195382

PATIENT
  Age: 73 Year
  Sex: Male

DRUGS (4)
  1. SAIZEN [Suspect]
     Active Substance: SOMATROPIN
     Dosage: ALTERNATE NIGHTS, CARTRIDGE
     Route: 058
     Dates: start: 20120510, end: 20200729
  2. SAIZEN [Suspect]
     Active Substance: SOMATROPIN
     Indication: PRODUCT USED FOR UNKNOWN INDICATION
     Dosage: 0.1 UNITS UNSPECIFIED
     Route: 058
     Dates: start: 20100729, end: 20120510
  3. HYDROCORTISONE. [Concomitant]
     Active Substance: HYDROCORTISONE
     Indication: PRODUCT USED FOR UNKNOWN INDICATION
  4. SAIZEN [Suspect]
     Active Substance: SOMATROPIN
     Dosage: REINTRODUCED (EVERY SECOND NIGHT)
     Route: 058
     Dates: start: 202010

REACTIONS (3)
  - Illness [Not Recovered/Not Resolved]
  - Surgery [Recovered/Resolved]
  - Off label use [Unknown]

NARRATIVE: CASE EVENT DATE: 2020
